FAERS Safety Report 24802638 (Version 2)
Quarter: 2025Q1

REPORT INFORMATION
  Report Type: Spontaneous
  Country: ES (occurrence: ES)
  Receive Date: 20250103
  Receipt Date: 20250123
  Transmission Date: 20250409
  Serious: Yes (Hospitalization, Other)
  Sender: AUROBINDO
  Company Number: ES-AUROBINDO-AUR-APL-2024-063692

PATIENT
  Age: 13 Year
  Sex: Male

DRUGS (21)
  1. VORICONAZOLE [Suspect]
     Active Substance: VORICONAZOLE
     Indication: Fungal infection
     Route: 043
  2. FLUDARABINE [Suspect]
     Active Substance: FLUDARABINE PHOSPHATE
     Indication: Stem cell transplant
     Dosage: 75 MILLIGRAM/SQ. METER, ONCE A DAY (75 MG/M2, ONCE/SINGLE)
     Route: 065
     Dates: start: 2006
  3. MYCOPHENOLIC ACID [Suspect]
     Active Substance: MYCOPHENOLIC ACID
     Indication: Stem cell transplant
     Route: 065
     Dates: start: 2006
  4. CYCLOPHOSPHAMIDE [Suspect]
     Active Substance: CYCLOPHOSPHAMIDE
     Indication: Stem cell transplant
     Route: 065
     Dates: start: 2006
  5. CYCLOPHOSPHAMIDE [Suspect]
     Active Substance: CYCLOPHOSPHAMIDE
     Route: 065
     Dates: start: 2006
  6. BUSULFAN [Suspect]
     Active Substance: BUSULFAN
     Indication: Stem cell transplant
     Route: 042
     Dates: start: 2006
  7. CYCLOSPORINE [Suspect]
     Active Substance: CYCLOSPORINE
     Indication: Prophylaxis
     Route: 065
     Dates: start: 200611
  8. CYCLOSPORINE [Suspect]
     Active Substance: CYCLOSPORINE
     Indication: Stem cell transplant
  9. METHOTREXATE [Suspect]
     Active Substance: METHOTREXATE
     Indication: Prophylaxis
     Route: 065
     Dates: start: 2006
  10. METHOTREXATE [Suspect]
     Active Substance: METHOTREXATE
     Indication: Stem cell transplant
  11. MYCOPHENOLATE MOFETIL [Concomitant]
     Active Substance: MYCOPHENOLATE MOFETIL
     Indication: Prophylaxis
     Route: 065
  12. FLUCONAZOLE [Concomitant]
     Active Substance: FLUCONAZOLE
     Indication: Antifungal prophylaxis
     Route: 042
  13. FLUDARABINE [Concomitant]
     Active Substance: FLUDARABINE PHOSPHATE
     Indication: Prophylaxis
     Route: 065
  14. AMPHOTERICIN B [Concomitant]
     Active Substance: AMPHOTERICIN B
     Indication: Prophylaxis
     Route: 065
  15. CASPOFUNGIN [Concomitant]
     Active Substance: CASPOFUNGIN
     Indication: Antifungal prophylaxis
     Route: 065
  16. CIDOFOVIR [Concomitant]
     Active Substance: CIDOFOVIR
     Indication: Antifungal prophylaxis
     Route: 043
  17. CIDOFOVIR [Concomitant]
     Active Substance: CIDOFOVIR
     Route: 043
  18. LIDOCAINE [Concomitant]
     Active Substance: LIDOCAINE
     Indication: Antifungal prophylaxis
     Route: 065
  19. HEPARIN [Concomitant]
     Active Substance: HEPARIN SODIUM
     Indication: Antifungal prophylaxis
     Route: 043
  20. SODIUM BICARBONATE [Concomitant]
     Active Substance: SODIUM BICARBONATE
     Indication: Antifungal prophylaxis
     Route: 043
  21. FENTANYL [Concomitant]
     Active Substance: FENTANYL
     Indication: Antifungal prophylaxis
     Route: 042

REACTIONS (29)
  - Acute graft versus host disease [Not Recovered/Not Resolved]
  - Chronic graft versus host disease [Not Recovered/Not Resolved]
  - Bladder operation [Unknown]
  - C-reactive protein increased [Unknown]
  - Renal disorder [Recovered/Resolved]
  - Pyelocaliectasis [Recovered/Resolved]
  - Respiratory failure [Recovered/Resolved]
  - Hypertension [Recovered/Resolved]
  - Leukoencephalopathy [Recovered/Resolved]
  - Cytomegalovirus chorioretinitis [Recovered/Resolved]
  - Lung infiltration [Recovered/Resolved]
  - Pain [Recovered/Resolved]
  - Ureteric dilatation [Recovered/Resolved]
  - Human polyomavirus infection [Recovered/Resolved]
  - Transplant dysfunction [Recovered/Resolved]
  - Enterococcal bacteraemia [Recovered/Resolved]
  - Salmonellosis [Recovered/Resolved]
  - Diarrhoea [Recovered/Resolved]
  - Candida infection [Recovered/Resolved]
  - Palatal disorder [Recovered/Resolved]
  - Cystitis haemorrhagic [Recovered/Resolved]
  - Pyrexia [Recovered/Resolved]
  - Bladder disorder [Recovered/Resolved]
  - Bladder mass [Recovered/Resolved]
  - Dysuria [Recovered/Resolved]
  - Haematuria [Recovered/Resolved]
  - Back pain [Recovered/Resolved]
  - Aspergillus infection [Recovered/Resolved]
  - Drug ineffective [Unknown]

NARRATIVE: CASE EVENT DATE: 20060101
